FAERS Safety Report 10955275 (Version 5)
Quarter: 2019Q1

REPORT INFORMATION
  Report Type: Report from Study
  Country: GR (occurrence: GR)
  Receive Date: 20150326
  Receipt Date: 20190208
  Transmission Date: 20190417
  Serious: Yes (Other)
  Sender: FDA-Public Use
  Company Number: GR-ROCHE-1554052

PATIENT

DRUGS (1)
  1. RITUXIMAB. [Suspect]
     Active Substance: RITUXIMAB
     Indication: CHRONIC GRAFT VERSUS HOST DISEASE
     Route: 065

REACTIONS (7)
  - Intentional product use issue [Unknown]
  - Lymphocyte count abnormal [Unknown]
  - Hyperplasia [Unknown]
  - CD8 lymphocytes abnormal [Unknown]
  - Off label use [Unknown]
  - T-lymphocyte count abnormal [Unknown]
  - Autoimmune haemolytic anaemia [Unknown]
